FAERS Safety Report 8508984-7 (Version None)
Quarter: 2012Q3

REPORT INFORMATION
  Report Type: 
  Country: None (occurrence: None)
  Receive Date: 20120703
  Receipt Date: 20120703
  Transmission Date: 20120928
  Serious: Yes (Other)
  Sender: FDA-Public Use
  Company Number: 001261619A

PATIENT
  Age: 54 Year
  Sex: Female

DRUGS (4)
  1. SKIN BRIGHTENING DECOLLETE AND NECK TREATMENT SPF 15 [Suspect]
     Dosage: ONCE DERMAL
     Route: 062
     Dates: start: 20120524
  2. ASPIRIN [Concomitant]
  3. MULTI-VITAMIN [Concomitant]
  4. MEANINGFUL BEAUTY ANTIOXIDANT DAY CREME SPF 20 [Suspect]
     Dosage: ONCE DERMAL
     Route: 062
     Dates: start: 20120524

REACTIONS (3)
  - RASH [None]
  - SKIN BURNING SENSATION [None]
  - DYSPNOEA [None]
